FAERS Safety Report 9936843 (Version 1)
Quarter: 2014Q1

REPORT INFORMATION
  Report Type: Spontaneous
  Country: US (occurrence: None)
  Receive Date: 20140113
  Receipt Date: 20140113
  Transmission Date: 20141002
  Serious: Yes (Other)
  Sender: FDA-Public Use
  Company Number: ID NR. 2587_SP

PATIENT
  Age: 34 None
  Sex: Female

DRUGS (1)
  1. LEVOFLOXACIN/DEXTROSE [Suspect]
     Indication: PROPHYLAXIS
     Route: 042
     Dates: start: 20131218, end: 20131218

REACTIONS (3)
  - Rash [None]
  - Erythema [None]
  - Pruritus [None]
